FAERS Safety Report 6238791-X (Version None)
Quarter: 2009Q2

REPORT INFORMATION
  Report Type: 
  Country: None (occurrence: None)
  Receive Date: 20090622
  Receipt Date: 20090616
  Transmission Date: 20091009
  Serious: Yes (Hospitalization)
  Sender: FDA-Public Use
  Company Number: KP-WATSON-2009-04532

PATIENT
  Age: 61 Year
  Sex: Male

DRUGS (1)
  1. METRONIDAZOLE [Suspect]
     Indication: LIVER ABSCESS
     Dosage: 2 G, DAILY

REACTIONS (4)
  - CEREBELLAR SYNDROME [None]
  - ENCEPHALOPATHY [None]
  - HYPOAESTHESIA [None]
  - PARAESTHESIA [None]
